FAERS Safety Report 14403005 (Version 4)
Quarter: 2019Q2

REPORT INFORMATION
  Report Type: Spontaneous
  Country: US (occurrence: US)
  Receive Date: 20180117
  Receipt Date: 20190529
  Transmission Date: 20190711
  Serious: Yes (Other)
  Sender: FDA-Public Use
  Company Number: US-PFIZER INC-2018020050

PATIENT
  Age: 65 Year
  Sex: Female
  Weight: 104 kg

DRUGS (16)
  1. HYDROXYCHLOROQUINE [Concomitant]
     Active Substance: HYDROXYCHLOROQUINE
     Indication: RHEUMATOID ARTHRITIS
     Dosage: 200 MG, 1X/DAY
     Route: 048
     Dates: start: 2010
  2. METHOTREXATE. [Concomitant]
     Active Substance: METHOTREXATE
     Indication: RHEUMATOID ARTHRITIS
     Dosage: 10/6.25, WEEKLY (6 TABLETS ONCE A WEEK)
     Route: 048
     Dates: start: 2012
  3. FOLIC ACID. [Concomitant]
     Active Substance: FOLIC ACID
     Indication: RHEUMATOID ARTHRITIS
     Dosage: 1 MG, 1X/DAY
     Route: 048
     Dates: start: 2012
  4. CLONIDINE. [Concomitant]
     Active Substance: CLONIDINE
     Indication: BLOOD PRESSURE ABNORMAL
     Dosage: 0.2 MG, 2X/DAY
     Route: 048
     Dates: start: 2010
  5. ASPIRIN. [Concomitant]
     Active Substance: ASPIRIN
     Indication: BLOOD PRESSURE ABNORMAL
     Dosage: 81 MG, 1X/DAY
     Route: 048
     Dates: start: 2008
  6. CHLORTHALIDONE. [Concomitant]
     Active Substance: CHLORTHALIDONE
     Indication: HYPERTENSION
     Dosage: 12.5 MG, 2X/DAY
     Dates: start: 201901
  7. NAPROXEN. [Concomitant]
     Active Substance: NAPROXEN
     Indication: RHEUMATOID ARTHRITIS
     Dosage: 500 MG, 2X/DAY
     Route: 048
     Dates: start: 2010
  8. LISINOPRIL. [Concomitant]
     Active Substance: LISINOPRIL
     Indication: BLOOD PRESSURE ABNORMAL
     Dosage: 20 MG, 1X/DAY
     Route: 048
     Dates: start: 2010
  9. VITAMIN D [COLECALCIFEROL] [Concomitant]
     Active Substance: CHOLECALCIFEROL
     Dosage: UNK
     Dates: start: 201801
  10. TRAMADOL. [Concomitant]
     Active Substance: TRAMADOL
     Indication: ARTHRITIS
     Dosage: 50 MG, 2X/DAY
     Route: 048
     Dates: start: 2010
  11. BISPROLOL COMP [Concomitant]
     Active Substance: BISOPROLOL FUMARATE\HYDROCHLOROTHIAZIDE
     Indication: BLOOD PRESSURE ABNORMAL
     Dosage: [BISOPROLOL FUMARATE: 10MG]/[HYDROCHLOROTHIAZIDE: 6.25MG]
     Route: 048
     Dates: start: 2010, end: 201901
  12. XELJANZ XR [Suspect]
     Active Substance: TOFACITINIB CITRATE
     Indication: RHEUMATOID ARTHRITIS
     Dosage: 11 MG, 1X/DAY
     Route: 048
     Dates: start: 201709
  13. AMLODIPINE BESYLATE. [Concomitant]
     Active Substance: AMLODIPINE BESYLATE
     Indication: BLOOD PRESSURE ABNORMAL
     Dosage: 5 MG, 1X/DAY
     Route: 048
     Dates: start: 2015
  14. LABETALOL HCL [Concomitant]
     Active Substance: LABETALOL HYDROCHLORIDE
     Indication: HYPERTENSION
     Dosage: 0.5 DF, 2X/DAY
     Route: 048
     Dates: start: 20180306
  15. XELJANZ XR [Suspect]
     Active Substance: TOFACITINIB CITRATE
     Dosage: 11 MG, WEEKLY (6 T ONCE A WEEK)
  16. LOVASTATIN. [Concomitant]
     Active Substance: LOVASTATIN
     Indication: BLOOD PRESSURE ABNORMAL
     Dosage: 20MG TABLET, 1 TABLET AT BEDTIME BY MOUTH
     Route: 048
     Dates: start: 2015

REACTIONS (9)
  - Gait inability [Recovering/Resolving]
  - Thrombosis [Unknown]
  - Muscle spasms [Recovered/Resolved]
  - Peripheral swelling [Unknown]
  - Joint swelling [Recovering/Resolving]
  - Muscle tightness [Unknown]
  - Lower limb fracture [Recovered/Resolved]
  - Pain in extremity [Recovering/Resolving]
  - Patella fracture [Recovered/Resolved]

NARRATIVE: CASE EVENT DATE: 201712
